FAERS Safety Report 6734604-8 (Version None)
Quarter: 2010Q2

REPORT INFORMATION
  Report Type: 
  Country: None (occurrence: None)
  Receive Date: 20100519
  Receipt Date: 20100512
  Transmission Date: 20101027
  Serious: Yes (Death)
  Sender: FDA-Public Use
  Company Number: 9039997-2009-00055

PATIENT
  Age: 27 Year
  Sex: Female
  Weight: 97.5234 kg

DRUGS (3)
  1. LEVULAN [Suspect]
     Indication: ACNE
     Dosage: 20% ONCE, TOPICAL
     Route: 061
  2. METFORMIN HCL [Concomitant]
  3. TRAZODONE HCL [Concomitant]

REACTIONS (3)
  - CARDIAC ARREST [None]
  - LONG QT SYNDROME [None]
  - OBESITY [None]
